FAERS Safety Report 6033894-7 (Version None)
Quarter: 2009Q1

REPORT INFORMATION
  Report Type: 
  Country: None (occurrence: None)
  Receive Date: 20090112
  Receipt Date: 20090106
  Transmission Date: 20090719
  Serious: Yes (Hospitalization)
  Sender: FDA-Public Use
  Company Number: KR-AVENTIS-200910216GDDC

PATIENT

DRUGS (1)
  1. RODOGYL [Suspect]
     Dosage: DOSE: UNK

REACTIONS (4)
  - ATAXIA [None]
  - DIZZINESS [None]
  - DYSARTHRIA [None]
  - ENCEPHALOPATHY [None]
